FAERS Safety Report 9500160 (Version 1)
Quarter: 2013Q1

REPORT INFORMATION
  Report Type: Spontaneous
  Country: US (occurrence: None)
  Receive Date: 20130118
  Receipt Date: 20130118
  Transmission Date: 20140127
  Serious: Yes (Other)
  Sender: FDA-Public Use
  Company Number: A-US2011-58838

PATIENT
  Age: 73 Year
  Sex: Female

DRUGS (5)
  1. TRACLEER [Suspect]
     Indication: PULMONARY ARTERIAL HYPERTENSION
     Route: 048
     Dates: start: 20111125, end: 20111214
  2. COUMADIN ( WARFARIN SODIUM) [Concomitant]
  3. ULORIC ( FEBUXOSTAT) [Concomitant]
  4. PRAVASTATIN ( PRAVASTATIN) [Concomitant]
  5. LASIX ( FUROSEMIDE SODIUM) [Concomitant]

REACTIONS (7)
  - Weight increased [None]
  - Malaise [None]
  - Abdominal distension [None]
  - Aspartate aminotransferase increased [None]
  - Alanine aminotransferase increased [None]
  - Ocular icterus [None]
  - Liver function test abnormal [None]
